FAERS Safety Report 19201578 (Version 1)
Quarter: 2021Q2

REPORT INFORMATION
  Report Type: Report from Study
  Country: FR (occurrence: FR)
  Receive Date: 20210430
  Receipt Date: 20210430
  Transmission Date: 20210717
  Serious: Yes (Hospitalization)
  Sender: FDA-Public Use
  Company Number: FR-IMMUNOMEDICS, INC.-2021IMMU000207

PATIENT
  Age: 75 Year
  Sex: Male
  Weight: 68 kg

DRUGS (4)
  1. SACITUZUMAB GOVITECAN. [Suspect]
     Active Substance: SACITUZUMAB GOVITECAN
     Indication: TRANSITIONAL CELL CANCER OF THE RENAL PELVIS AND URETER
     Dosage: 10 MG/KG; DAYS 1AND 8 OF 21 DAYS CYCLE
     Route: 042
     Dates: start: 20210203, end: 20210203
  2. SACITUZUMAB GOVITECAN. [Suspect]
     Active Substance: SACITUZUMAB GOVITECAN
     Dosage: 10 MG/KG; DAYS 1AND 8 OF 21 DAYS CYCLE
     Route: 042
     Dates: start: 20210413, end: 20210413
  3. PEMBROLIZUMAB. [Suspect]
     Active Substance: PEMBROLIZUMAB
     Dosage: 200 MG; DAY 1 EVERY 3 WEEKS
     Route: 042
     Dates: start: 20210406, end: 20210406
  4. PEMBROLIZUMAB. [Suspect]
     Active Substance: PEMBROLIZUMAB
     Indication: TRANSITIONAL CELL CANCER OF THE RENAL PELVIS AND URETER
     Dosage: 200 MG; DAY 1 EVERY 3 WEEKS
     Route: 042
     Dates: start: 20210203, end: 20210203

REACTIONS (3)
  - Diarrhoea [Not Recovered/Not Resolved]
  - Decreased appetite [Not Recovered/Not Resolved]
  - Acute kidney injury [Not Recovered/Not Resolved]

NARRATIVE: CASE EVENT DATE: 20210421
